FAERS Safety Report 4423176-9 (Version None)
Quarter: 2004Q3

REPORT INFORMATION
  Report Type: 
  Country: None (occurrence: None)
  Receive Date: 20040713
  Receipt Date: 20030922
  Transmission Date: 20050211
  Serious: No
  Sender: FDA-Public Use
  Company Number: PHEH2003US08666

PATIENT
  Age: 66 Year
  Sex: Female

DRUGS (1)
  1. ELIDEL [Suspect]
     Dosage: BID, TOPICAL
     Route: 061
     Dates: start: 20030921

REACTIONS (3)
  - APPLICATION SITE BURNING [None]
  - ASTHENIA [None]
  - DIZZINESS [None]
